FAERS Safety Report 6230618-5 (Version None)
Quarter: 2009Q2

REPORT INFORMATION
  Report Type: 
  Country: None (occurrence: None)
  Receive Date: 20090615
  Receipt Date: 20090518
  Transmission Date: 20091009
  Serious: No
  Sender: FDA-Public Use
  Company Number: US-ABBOTT-09P-163-0574080-00

PATIENT
  Sex: Female
  Weight: 90.8 kg

DRUGS (2)
  1. TRILIPIX [Suspect]
     Indication: BLOOD CHOLESTEROL INCREASED
     Route: 048
     Dates: start: 20090507, end: 20090515
  2. BYSTOLIC [Concomitant]
     Indication: HYPERTENSION
     Route: 048

REACTIONS (1)
  - PYREXIA [None]
